FAERS Safety Report 17990876 (Version 22)
Quarter: 2022Q2

REPORT INFORMATION
  Report Type: Spontaneous
  Country: GB (occurrence: GB)
  Receive Date: 20200707
  Receipt Date: 20220622
  Transmission Date: 20220721
  Serious: Yes (Hospitalization, Other)
  Sender: FDA-Public Use
  Company Number: GB-MYLANLABS-2020M1060756

PATIENT
  Sex: Male

DRUGS (60)
  1. ABACAVIR [Suspect]
     Active Substance: ABACAVIR
     Indication: Product used for unknown indication
     Dosage: QD (STRENGTH 300, OD)
  2. ABACAVIR [Suspect]
     Active Substance: ABACAVIR
     Dosage: 600 MILLIGRAM, QD
  3. ABACAVIR [Suspect]
     Active Substance: ABACAVIR
     Dosage: 300 MILLIGRAM, QD,  (STRENGTH 300, OD)
  4. ABACAVIR [Suspect]
     Active Substance: ABACAVIR
     Dosage: 300 MILLIGRAM, QD, (300 MG, 1D)
  5. ABACAVIR [Suspect]
     Active Substance: ABACAVIR
     Dosage: 300 MILLIGRAM, QD
  6. ABACAVIR [Suspect]
     Active Substance: ABACAVIR
     Dosage: QD (STRENGTH 300, OD)
  7. ABACAVIR [Suspect]
     Active Substance: ABACAVIR
     Dosage: 600 MILLIGRAM, QD
  8. ABACAVIR [Suspect]
     Active Substance: ABACAVIR
     Dosage: 600 MG, QD (600 MILLIGRAM, ONCE A DAY91D,600 CAPSULE)
  9. ABACAVIR [Suspect]
     Active Substance: ABACAVIR
     Dosage: 1 DOSAGE FORM, QD, ONCE A DAY (STRENGTH 300, OD)
  10. ABACAVIR [Suspect]
     Active Substance: ABACAVIR
     Dosage: UNK
  11. ABACAVIR [Suspect]
     Active Substance: ABACAVIR
     Dosage: 600 MILLIGRAM, QD(UNK UNK, 1D,600 CAPSULE )
  12. ABACAVIR [Suspect]
     Active Substance: ABACAVIR
     Dosage: 300 MILLIGRAM, QD
  13. ABACAVIR [Suspect]
     Active Substance: ABACAVIR
     Dosage: 300 MILLIGRAM, QD
  14. ABACAVIR [Suspect]
     Active Substance: ABACAVIR
     Dosage: 300 MILLIGRAM, QD
  15. ABACAVIR [Suspect]
     Active Substance: ABACAVIR
     Dosage: 1 DOSAGE FORM, QD
  16. ABACAVIR [Suspect]
     Active Substance: ABACAVIR
     Dosage: 600 MILLIGRAM, QD
  17. LAMIVUDINE [Suspect]
     Active Substance: LAMIVUDINE
     Indication: Product used for unknown indication
     Dosage: 300 MILLIGRAM, QD, (300 MG, QD)
  18. LAMIVUDINE [Suspect]
     Active Substance: LAMIVUDINE
     Dosage: 300 MILLIGRAM, QD,  (STRENGTH 300, OD 1 1 D 300MG)
  19. LAMIVUDINE [Suspect]
     Active Substance: LAMIVUDINE
     Dosage: 100 MILLIGRAM, QD, (1D,100)
  20. LAMIVUDINE [Suspect]
     Active Substance: LAMIVUDINE
     Dosage: UNK, QD, (UNK UNK, QD, 100 OD)
  21. LAMIVUDINE [Suspect]
     Active Substance: LAMIVUDINE
     Dosage: 300 MILLIGRAM, QD, (300 MG, QD)
  22. LAMIVUDINE [Suspect]
     Active Substance: LAMIVUDINE
     Dosage: 100 MILLIGRAM, QD, (100 MG, QD)
  23. LAMIVUDINE [Suspect]
     Active Substance: LAMIVUDINE
     Dosage: 100 MILLIGRAM, QD, (100 MG, 1D, 100 MG, QD (STRENGTH 100, OD))
  24. LAMIVUDINE [Suspect]
     Active Substance: LAMIVUDINE
     Dosage: UNK UNK, QD, 100 OD
  25. LAMIVUDINE [Suspect]
     Active Substance: LAMIVUDINE
     Dosage: 300 MILLIGRAM, QD
  26. LAMIVUDINE [Suspect]
     Active Substance: LAMIVUDINE
     Dosage: 300 MILLIGRAM, QD
  27. LAMIVUDINE [Suspect]
     Active Substance: LAMIVUDINE
     Dosage: 600 MILLIGRAM, QD (600 MG, QD)
  28. LAMIVUDINE [Suspect]
     Active Substance: LAMIVUDINE
     Dosage: 300 MILLIGRAM, QD
  29. LAMIVUDINE [Suspect]
     Active Substance: LAMIVUDINE
     Dosage: 100 MILLIGRAM, QD
  30. LAMIVUDINE [Suspect]
     Active Substance: LAMIVUDINE
     Dosage: 100 MILLIGRAM, QD
  31. LAMIVUDINE [Suspect]
     Active Substance: LAMIVUDINE
     Dosage: 100 MILLIGRAM, QD
  32. LAMIVUDINE [Suspect]
     Active Substance: LAMIVUDINE
     Dosage: 100 MILLIGRAM, QD
  33. LAMIVUDINE [Suspect]
     Active Substance: LAMIVUDINE
     Dosage: 100 MILLIGRAM, QD
  34. EFAVIRENZ [Suspect]
     Active Substance: EFAVIRENZ
     Indication: Product used for unknown indication
     Dosage: QD (STRENGTH 600)
  35. EFAVIRENZ [Suspect]
     Active Substance: EFAVIRENZ
     Dosage: 1 DOSAGE FORM, QD (STRENGTH 600)
  36. EFAVIRENZ [Suspect]
     Active Substance: EFAVIRENZ
     Dosage: 600 MILLIGRAM, QD, (600 MG, 1D,UNK UNK, 1D,600)
  37. EFAVIRENZ [Suspect]
     Active Substance: EFAVIRENZ
     Dosage: 600 MILLIGRAM, QD(600 MILLIGRAM, QD, (600 MG, 1D,UNK UNK, 1D,600)
  38. EFAVIRENZ [Suspect]
     Active Substance: EFAVIRENZ
     Dosage: UNK, ONCE A DAY
  39. EFAVIRENZ [Suspect]
     Active Substance: EFAVIRENZ
     Dosage: 300 MILLIGRAM, QD
  40. EFAVIRENZ [Suspect]
     Active Substance: EFAVIRENZ
     Dosage: 600 MILLIGRAM, QD(600 MILLIGRAM, QD, 1 DAY)
  41. EFAVIRENZ [Suspect]
     Active Substance: EFAVIRENZ
     Dosage: 600 MILLIGRAM, QD(UNK UNK, QD (STRENGTH 600))
  42. EFAVIRENZ [Suspect]
     Active Substance: EFAVIRENZ
     Dosage: 1 DOSAGE FORM, QD
  43. LAMIVUDINE [Suspect]
     Active Substance: LAMIVUDINE
     Indication: Product used for unknown indication
     Dosage: 100 MILLIGRAM, QD, (STRENGTH 100, OD)
  44. LAMIVUDINE [Suspect]
     Active Substance: LAMIVUDINE
     Dosage: 100 MILLIGRAM, QD, ONCE A DAY
  45. LAMIVUDINE [Suspect]
     Active Substance: LAMIVUDINE
     Dosage: 300 MILLIGRAM, QD
  46. LAMIVUDINE [Suspect]
     Active Substance: LAMIVUDINE
     Dosage: 300 MILLIGRAM, QD, (STRENGTH 300, OD 1 1 D 300MG)
  47. LAMIVUDINE [Suspect]
     Active Substance: LAMIVUDINE
     Dosage: 100 MILLIGRAM, QD, (STRENGTH 100 OD)
  48. LAMIVUDINE [Suspect]
     Active Substance: LAMIVUDINE
     Dosage: 600 MILLIGRAM, QD
  49. LAMIVUDINE [Suspect]
     Active Substance: LAMIVUDINE
     Dosage: QD (ONCE A DAY)
  50. LAMIVUDINE [Suspect]
     Active Substance: LAMIVUDINE
     Dosage: UNK, QD (STRENGTH 100 OD)
  51. LAMIVUDINE [Suspect]
     Active Substance: LAMIVUDINE
     Dosage: 300 MILLIGRAM, QD(300 MILLIGRAM, QD (STRENGTH 100 OD))
  52. LAMIVUDINE [Suspect]
     Active Substance: LAMIVUDINE
     Dosage: 100 MILLIGRAM, QD(100 MILLIGRAM, QD)
  53. LAMIVUDINE [Suspect]
     Active Substance: LAMIVUDINE
     Dosage: 100 MILLIGRAM, QD
  54. LAMIVUDINE [Suspect]
     Active Substance: LAMIVUDINE
     Dosage: 100 MILLIGRAM, QD
  55. LAMIVUDINE [Suspect]
     Active Substance: LAMIVUDINE
     Dosage: 300 MILLIGRAM, QD
  56. ABACAVIR SULFATE [Suspect]
     Active Substance: ABACAVIR SULFATE
     Indication: Product used for unknown indication
     Dosage: 300 MILLIGRAM, QD ( QD (1D, 300))
  57. ABACAVIR SULFATE [Suspect]
     Active Substance: ABACAVIR SULFATE
     Dosage: 600 MILLIGRAM, QD
  58. ABACAVIR SULFATE [Suspect]
     Active Substance: ABACAVIR SULFATE
     Dosage: 1 DOSAGE FORM, QD (STRENGTH 300, OD)
  59. ABACAVIR SULFATE [Suspect]
     Active Substance: ABACAVIR SULFATE
     Dosage: (UNK UNK, QD, 300, OD)
  60. ABACAVIR SULFATE [Suspect]
     Active Substance: ABACAVIR SULFATE
     Dosage: 600 MILLIGRAM, QD

REACTIONS (7)
  - Lung neoplasm malignant [Unknown]
  - Lung cancer metastatic [Unknown]
  - Metastases to central nervous system [Unknown]
  - Life expectancy shortened [Not Recovered/Not Resolved]
  - Feeling abnormal [Unknown]
  - Malaise [Unknown]
  - Hospitalisation [Unknown]
